FAERS Safety Report 5604537-9 (Version None)
Quarter: 2008Q1

REPORT INFORMATION
  Report Type: 
  Country: None (occurrence: None)
  Receive Date: 20080124
  Receipt Date: 20080124
  Transmission Date: 20080703
  Serious: Yes (Other)
  Sender: FDA-Public Use
  Company Number: None

PATIENT
  Sex: Female
  Weight: 63.5036 kg

DRUGS (2)
  1. DILANTIN [Suspect]
     Indication: EPILEPSY
     Dosage: 300MG PER DAY BID PO
     Route: 048
     Dates: start: 20071029, end: 20080117
  2. DILANTIN [Suspect]
     Indication: PARTIAL SEIZURES
     Dosage: 300MG PER DAY BID PO
     Route: 048
     Dates: start: 20071029, end: 20080117

REACTIONS (2)
  - PRURITUS GENERALISED [None]
  - URTICARIA [None]
